FAERS Safety Report 6858506-1 (Version None)
Quarter: 2010Q3

REPORT INFORMATION
  Report Type: 
  Country: None (occurrence: None)
  Receive Date: 20100719
  Receipt Date: 20080208
  Transmission Date: 20110219
  Serious: No
  Sender: FDA-Public Use
  Company Number: US-PFIZER INC-2008013300

PATIENT
  Sex: Female

DRUGS (1)
  1. CHANTIX [Suspect]
     Dates: start: 20080201

REACTIONS (4)
  - ABNORMAL DREAMS [None]
  - DRY THROAT [None]
  - GENITAL DISCOMFORT [None]
  - GINGIVAL BLEEDING [None]
